FAERS Safety Report 13574812 (Version 1)
Quarter: 2017Q2

REPORT INFORMATION
  Report Type: Spontaneous
  Country: US (occurrence: US)
  Receive Date: 20170523
  Receipt Date: 20170523
  Transmission Date: 20170830
  Serious: No
  Sender: FDA-Public Use
  Company Number: US-B.I. PHARMACEUTICALS,INC./RIDGEFIELD-2017-BI-027662

PATIENT
  Age: 25 Year
  Sex: Female

DRUGS (7)
  1. MIDODRINE HCL [Concomitant]
     Active Substance: MIDODRINE HYDROCHLORIDE
     Indication: HYPOTENSION
     Dosage: 2 -3 TIMES A DAY AS NEEDED;  FORM STRENGTH: 2.5 MG; FORMULATION: TABLET
     Route: 048
     Dates: start: 201512
  2. BUPROPION. [Concomitant]
     Active Substance: BUPROPION
     Indication: ANXIETY
     Dosage: ONCE DAILY;  FORM STRENGTH: 150MG; FORMULATION: TABLET
     Route: 048
     Dates: start: 201702
  3. AZELASTINE [Concomitant]
     Active Substance: AZELASTINE
     Indication: BRONCHIAL HYPERREACTIVITY
     Dosage: ONE IN EACH NOSTRIL TWICE DAILY;  FORMULATION: NASAL SPRAY;
     Route: 050
     Dates: start: 201702
  4. MIRTAZAPINE. [Concomitant]
     Active Substance: MIRTAZAPINE
     Indication: PRODUCT USED FOR UNKNOWN INDICATION
     Dosage: ONCE DAILY;  FORM STRENGTH: 7.5MG; FORMULATION: CAPLET
     Route: 048
     Dates: start: 201702
  5. BUSPIRONE HYDROCHLORIDE. [Concomitant]
     Active Substance: BUSPIRONE HYDROCHLORIDE
     Indication: ANXIETY
     Dosage: TWICE DAILY;  FORM STRENGTH: 15MG; FORMULATION: CAPLET
     Route: 055
     Dates: start: 201609
  6. SERTRALINE [Concomitant]
     Active Substance: SERTRALINE HYDROCHLORIDE
     Indication: ANXIETY
     Dosage: ONCE DAILY;  FORM STRENGTH: 50MG; FORMULATION: CAPLET
     Route: 048
     Dates: start: 201512
  7. SPIRIVA [Suspect]
     Active Substance: TIOTROPIUM BROMIDE MONOHYDRATE
     Indication: BRONCHIAL HYPERREACTIVITY
     Dosage: 2 INHALATIONS ONCE DAILY;  FORM STRENGTH: 2.5 MCG; FORMULATION: INHALATION SPRAY? ADMINISTRATION COR
     Route: 055
     Dates: start: 201512, end: 20170423

REACTIONS (4)
  - Cough [Not Recovered/Not Resolved]
  - Off label use [Unknown]
  - Headache [Not Recovered/Not Resolved]
  - Dyspnoea [Not Recovered/Not Resolved]

NARRATIVE: CASE EVENT DATE: 201512
